FAERS Safety Report 10342578 (Version 1)
Quarter: 2014Q3

REPORT INFORMATION
  Report Type: Spontaneous
  Country: CA (occurrence: CA)
  Receive Date: 20140725
  Receipt Date: 20140725
  Transmission Date: 20150326
  Serious: Yes (Other)
  Sender: FDA-Public Use
  Company Number: CA-PFIZER INC-2014207602

PATIENT
  Age: 64 Year
  Sex: Female
  Weight: 53 kg

DRUGS (5)
  1. MAGNOLAX [Concomitant]
     Dosage: UNK
     Route: 048
  2. VENTOLIN [Concomitant]
     Active Substance: ALBUTEROL SULFATE
     Dosage: UNK
     Route: 065
  3. MOTRIN [Suspect]
     Active Substance: IBUPROFEN
     Dosage: 600 MG, 4X/DAY
     Route: 048
  4. CODEINE [Concomitant]
     Active Substance: CODEINE
     Dosage: UNK
     Route: 048
  5. TYLENOL [Suspect]
     Active Substance: ACETAMINOPHEN
     Dosage: 32 MG (TABLET, ORAL) 4 DOSES IN 4 DAYS
     Route: 048

REACTIONS (1)
  - Hepatic failure [Recovered/Resolved]
